FAERS Safety Report 5888132 (Version 3)
Quarter: 2020Q3

REPORT INFORMATION
  Report Type: Report from Study
  Country: US (occurrence: US)
  Receive Date: 20050929
  Receipt Date: 20051116
  Transmission Date: 20201104
  Serious: Yes (Other)
  Sender: FDA-Public Use
  Company Number: US-JNJFOC-20050905639

PATIENT
  Age: 38 Year
  Sex: Female
  Weight: 59.42 kg

DRUGS (24)
  1. CISAPRIDE [Suspect]
     Active Substance: CISAPRIDE
     Indication: GASTROOESOPHAGEAL REFLUX DISEASE
     Route: 048
  2. MULTIVITAMINS [Concomitant]
     Active Substance: VITAMINS
     Route: 048
  3. CALCIUM GLUCONATE. [Concomitant]
     Active Substance: CALCIUM GLUCONATE
     Indication: STRESS FRACTURE
     Route: 048
  4. LEXAPRO [Concomitant]
     Active Substance: ESCITALOPRAM OXALATE
     Indication: DEPRESSION
     Route: 048
  5. ALLEGRA?D [Concomitant]
     Active Substance: FEXOFENADINE\PSEUDOEPHEDRINE
     Route: 048
  6. ALLEGRA?D [Concomitant]
     Active Substance: FEXOFENADINE\PSEUDOEPHEDRINE
     Indication: SEASONAL ALLERGY
     Route: 048
  7. TYLENOL XL [Concomitant]
     Indication: ANKLE OPERATION
  8. CISAPRIDE [Suspect]
     Active Substance: CISAPRIDE
     Route: 048
  9. DULCOLAX NOS [Concomitant]
     Active Substance: BISACODYL OR DOCUSATE SODIUM
     Indication: CONSTIPATION
     Route: 048
  10. NEXIUM [Concomitant]
     Active Substance: ESOMEPRAZOLE MAGNESIUM
     Route: 048
  11. MULTIVITAMINS [Concomitant]
     Active Substance: VITAMINS
     Route: 048
  12. MULTIVITAMINS [Concomitant]
     Active Substance: VITAMINS
     Route: 048
  13. MULTIVITAMINS [Concomitant]
     Active Substance: VITAMINS
     Route: 048
  14. MULTIVITAMINS [Concomitant]
     Active Substance: VITAMINS
     Route: 048
  15. MULTIVITAMINS [Concomitant]
     Active Substance: VITAMINS
     Route: 048
  16. VITAMIN B [Concomitant]
     Active Substance: VITAMIN B
  17. SUDAFED [Concomitant]
     Active Substance: PSEUDOEPHEDRINE HYDROCHLORIDE
     Route: 048
  18. CISAPRIDE [Suspect]
     Active Substance: CISAPRIDE
     Route: 048
  19. CISAPRIDE [Suspect]
     Active Substance: CISAPRIDE
     Route: 048
  20. CISAPRIDE [Suspect]
     Active Substance: CISAPRIDE
     Indication: GASTROOESOPHAGEAL REFLUX DISEASE
     Route: 048
  21. ZANTAC [Concomitant]
     Active Substance: RANITIDINE HYDROCHLORIDE
  22. MULTIVITAMINS [Concomitant]
     Active Substance: VITAMINS
     Route: 048
  23. MULTIVITAMINS [Concomitant]
     Active Substance: VITAMINS
     Route: 048
  24. SUDAFED [Concomitant]
     Active Substance: PSEUDOEPHEDRINE HYDROCHLORIDE
     Indication: HEADACHE
     Route: 048

REACTIONS (1)
  - Electrocardiogram QT prolonged [Recovered/Resolved]

NARRATIVE: CASE EVENT DATE: 20050901
